FAERS Safety Report 5025878-2 (Version None)
Quarter: 2006Q2

REPORT INFORMATION
  Report Type: 
  Country: None (occurrence: None)
  Receive Date: 20060427
  Receipt Date: 20050916
  Transmission Date: 20061013
  Serious: Yes (Other)
  Sender: FDA-Public Use
  Company Number: 2005119760

PATIENT
  Age: 3 Year
  Sex: Male
  Weight: 11.7935 kg

DRUGS (1)
  1. ZITHROMAX [Suspect]
     Indication: BRONCHITIS
     Dosage: 2000 MG (2 GRAM, 1 IN 1 D), ORAL
     Route: 048
     Dates: start: 20050823, end: 20050823

REACTIONS (2)
  - OVERDOSE [None]
  - VOMITING [None]
